FAERS Safety Report 12620536 (Version 2)
Quarter: 2016Q3

REPORT INFORMATION
  Report Type: Report from Study
  Country: US (occurrence: US)
  Receive Date: 20160804
  Receipt Date: 20160915
  Transmission Date: 20161109
  Serious: Yes (Other)
  Sender: FDA-Public Use
  Company Number: US-BIOGEN-2016BI00273650

PATIENT
  Sex: Female

DRUGS (2)
  1. TYSABRI [Suspect]
     Active Substance: NATALIZUMAB
     Indication: MULTIPLE SCLEROSIS
     Dosage: INFUSED FOR OVER 1 HOUR
     Route: 042
  2. COPAXONE [Concomitant]
     Active Substance: GLATIRAMER ACETATE
     Indication: PRODUCT USED FOR UNKNOWN INDICATION
     Route: 065
     Dates: start: 2005, end: 2016

REACTIONS (7)
  - Cardiac failure congestive [Unknown]
  - Antiphospholipid syndrome [Unknown]
  - Deep vein thrombosis [Unknown]
  - Cystitis haemorrhagic [Unknown]
  - Acute respiratory failure [Unknown]
  - Haemorrhagic anaemia [Unknown]
  - Pulmonary embolism [Unknown]
